FAERS Safety Report 11795222 (Version 1)
Quarter: 2015Q4

REPORT INFORMATION
  Report Type: Spontaneous
  Country: DE (occurrence: DE)
  Receive Date: 20151202
  Receipt Date: 20151202
  Transmission Date: 20160305
  Serious: Yes (Hospitalization, Disabling)
  Sender: FDA-Public Use
  Company Number: GXKR2015DE005255

PATIENT

DRUGS (4)
  1. ASPIRIN. [Concomitant]
     Active Substance: ASPIRIN
     Indication: CORONARY ARTERY DISEASE
     Dosage: 100 MG, QD
     Route: 048
     Dates: start: 1995
  2. DEKRISTOL [Concomitant]
     Active Substance: CHOLECALCIFEROL
     Indication: VITAMIN D DEFICIENCY
     Dosage: 2 DF, Q2MO
     Route: 048
     Dates: start: 2012
  3. SIMVASTATIN. [Suspect]
     Active Substance: SIMVASTATIN
     Indication: TYPE IIA HYPERLIPIDAEMIA
     Dosage: 20 MG, QD
     Route: 048
     Dates: start: 1995
  4. FERMED//SACCHARATED IRON OXIDE [Concomitant]
     Indication: IRON DEFICIENCY ANAEMIA
     Dosage: DAILY DOSE: 100 MG MILLGRAM(S) EVERY WEEKS
     Route: 042
     Dates: start: 201505, end: 201507

REACTIONS (1)
  - Non-alcoholic steatohepatitis [Recovering/Resolving]

NARRATIVE: CASE EVENT DATE: 2013
